FAERS Safety Report 7806496-7 (Version None)
Quarter: 2011Q4

REPORT INFORMATION
  Report Type: 
  Country: None (occurrence: None)
  Receive Date: 20111011
  Receipt Date: 20110929
  Transmission Date: 20120403
  Serious: Yes (Hospitalization)
  Sender: FDA-Public Use
  Company Number: JP-BAYER-2011-093122

PATIENT
  Age: 72 Year
  Sex: Female
  Weight: 68 kg

DRUGS (15)
  1. LIVACT [Concomitant]
     Dosage: DAILY DOSE 12.45 G
     Route: 048
  2. METFORMIN HCL [Concomitant]
     Dosage: DAILY DOSE 500 MG
     Route: 048
     Dates: start: 20060101
  3. PORTOLAC [Concomitant]
     Indication: HEPATIC ENCEPHALOPATHY PROPHYLAXIS
     Dosage: DAILY DOSE 18 G
     Route: 048
     Dates: start: 20110704
  4. SORAFENIB (RAF KINASE INHIBITOR) [Suspect]
     Dosage: DAILY DOSE 200 MG
     Route: 048
     Dates: start: 20110209, end: 20110213
  5. SORAFENIB (RAF KINASE INHIBITOR) [Suspect]
     Dosage: UNK
     Dates: end: 20110603
  6. ALDACTONE [Concomitant]
     Dosage: DAILY DOSE 25 MG
     Route: 048
     Dates: start: 20101028
  7. LENDORMIN [Concomitant]
     Dosage: DAILY DOSE .25 MG
     Route: 048
     Dates: start: 20091005
  8. AMARYL [Concomitant]
     Dosage: DAILY DOSE 2 MG
     Route: 048
     Dates: start: 20060101
  9. JANUVIA [Concomitant]
     Dosage: DAILY DOSE 50 MG
     Route: 048
     Dates: start: 20060101
  10. NORVASC [Concomitant]
     Dosage: DAILY DOSE 2.5 MG
     Route: 048
  11. SORAFENIB (RAF KINASE INHIBITOR) [Suspect]
     Indication: HEPATIC NEOPLASM MALIGNANT
     Dosage: DAILY DOSE 400 MG
     Route: 048
     Dates: start: 20110120, end: 20110204
  12. LANSOPRAZOLE [Concomitant]
     Dosage: DAILY DOSE 15 MG
     Route: 048
  13. SORAFENIB (RAF KINASE INHIBITOR) [Suspect]
     Dosage: UNK
     Dates: end: 20110626
  14. KERATINAMIN [Concomitant]
     Dosage: UNK
     Route: 061
     Dates: start: 20110113
  15. LASIX [Concomitant]
     Dosage: DAILY DOSE 40 MG
     Route: 048
     Dates: start: 20101028

REACTIONS (8)
  - HEPATIC ENCEPHALOPATHY [None]
  - PALMAR-PLANTAR ERYTHRODYSAESTHESIA SYNDROME [None]
  - NASOPHARYNGITIS [None]
  - PAIN IN EXTREMITY [None]
  - HAEMORRHAGE SUBCUTANEOUS [None]
  - HYPERBILIRUBINAEMIA [None]
  - NIPPLE SWELLING [None]
  - TREMOR [None]
